FAERS Safety Report 6634459-6 (Version None)
Quarter: 2010Q1

REPORT INFORMATION
  Report Type: 
  Country: None (occurrence: None)
  Receive Date: 20100315
  Receipt Date: 20100301
  Transmission Date: 20100710
  Serious: Yes (Other)
  Sender: FDA-Public Use
  Company Number: US-PFIZER INC-2008088160

PATIENT
  Sex: Male

DRUGS (6)
  1. GEODON [Suspect]
     Indication: BIPOLAR DISORDER
     Dosage: UNK
     Dates: start: 20080301
  2. LYRICA [Suspect]
     Indication: FIBROMYALGIA
     Dosage: UNK
     Dates: start: 20080121
  3. LYRICA [Suspect]
     Indication: CONVULSION
  4. CLONAZEPAM [Suspect]
     Dosage: UNK
  5. LAMICTAL CD [Suspect]
     Dosage: UNK
  6. PRISTIQ [Concomitant]
     Dosage: UNK

REACTIONS (17)
  - ANGER [None]
  - BIPOLAR DISORDER [None]
  - COGNITIVE DISORDER [None]
  - CONFUSIONAL STATE [None]
  - DECREASED APPETITE [None]
  - DRUG INEFFECTIVE [None]
  - FATIGUE [None]
  - FEELING ABNORMAL [None]
  - FIBROMYALGIA [None]
  - ILL-DEFINED DISORDER [None]
  - MANIA [None]
  - MENTAL DISORDER [None]
  - PARALYSIS [None]
  - PERSONALITY CHANGE [None]
  - THINKING ABNORMAL [None]
  - UNEVALUABLE EVENT [None]
  - VIOLENCE-RELATED SYMPTOM [None]
